FAERS Safety Report 9513510 (Version 1)
Quarter: 2013Q3

REPORT INFORMATION
  Report Type: Spontaneous
  Country: US (occurrence: US)
  Receive Date: 20130910
  Receipt Date: 20130910
  Transmission Date: 20140515
  Serious: No
  Sender: FDA-Public Use
  Company Number: US-TARO-2013P1009902

PATIENT
  Age: 58 Year
  Sex: Male

DRUGS (3)
  1. WARFARIN SODIUM TABLETS USP 10MG [Suspect]
     Route: 048
     Dates: start: 20121012, end: 201306
  2. WARFARIN SODIUM TABLETS USP 10MG [Suspect]
     Route: 048
     Dates: start: 201306
  3. WARFARIN SODIUM TABLETS USP 10MG [Suspect]
     Route: 048
     Dates: start: 201306

REACTIONS (1)
  - International normalised ratio increased [Unknown]
